FAERS Safety Report 6694404-4 (Version None)
Quarter: 2010Q2

REPORT INFORMATION
  Report Type: 
  Country: None (occurrence: None)
  Receive Date: 20100423
  Receipt Date: 20100408
  Transmission Date: 20101027
  Serious: Yes (Other)
  Sender: FDA-Public Use
  Company Number: ES-JNJFOC-20100402676

PATIENT
  Age: 50 Year
  Sex: Male

DRUGS (2)
  1. REMICADE [Suspect]
     Indication: PSORIASIS
     Dosage: WEEKS 0, 2, 6
     Route: 042
  2. REMICADE [Suspect]
     Dosage: 29 INFUSIONS ON UNSPECIFIED DATES OVER 4 YEARS AND 7 MONTHS
     Route: 042

REACTIONS (3)
  - ANTINUCLEAR ANTIBODY POSITIVE [None]
  - DRUG INEFFECTIVE [None]
  - SKIN PAPILLOMA [None]
